FAERS Safety Report 7196866-5 (Version None)
Quarter: 2010Q4

REPORT INFORMATION
  Report Type: 
  Country: None (occurrence: None)
  Receive Date: 20101223
  Receipt Date: 20101208
  Transmission Date: 20110411
  Serious: No
  Sender: FDA-Public Use
  Company Number: US-AMGEN-USASP2010002077

PATIENT

DRUGS (1)
  1. ENBREL [Suspect]
     Indication: PSORIASIS
     Dosage: 50 MG, 2 TIMES/WK
     Dates: start: 20101008

REACTIONS (5)
  - APHONIA [None]
  - DIZZINESS [None]
  - FATIGUE [None]
  - INSOMNIA [None]
  - NASOPHARYNGITIS [None]
